FAERS Safety Report 8902368 (Version 1)
Quarter: 2012Q4

REPORT INFORMATION
  Report Type: 
  Country: ES (occurrence: ES)
  Receive Date: 20121112
  Receipt Date: 20121112
  Transmission Date: 20130627
  Serious: Yes (Hospitalization, Other)
  Sender: FDA-Public Use
  Company Number: ES-PFIZER INC-2012279548

PATIENT
  Age: 41 Year
  Sex: Male

DRUGS (6)
  1. ATARAX [Suspect]
     Dosage: 25 mg, 1x/day
     Route: 048
     Dates: start: 201002, end: 20110928
  2. SERTRALINE HCL [Suspect]
     Dosage: 50 mg, 1x/day
     Route: 048
     Dates: start: 200909, end: 20110928
  3. PARACETAMOL [Suspect]
     Dosage: 1.95 mg, 1x/day
     Route: 048
  4. LORMETAZEPAM [Suspect]
     Indication: INSOMNIA
     Dosage: 4 mg, 1x/day
     Route: 048
     Dates: start: 201009, end: 20110928
  5. ESOMEPRAZOLE [Concomitant]
     Indication: PROPHYLAXIS
     Dosage: 20 mg, 1x/day
     Route: 048
     Dates: start: 200911, end: 20110928
  6. FERPLEX [Concomitant]
     Indication: ANAEMIA
     Dosage: 40 mg, 1x/day
     Route: 048
     Dates: start: 200901, end: 20110928

REACTIONS (1)
  - Hepatic encephalopathy [Recovered/Resolved]
